FAERS Safety Report 14392613 (Version 6)
Quarter: 2023Q4

REPORT INFORMATION
  Report Type: Report from Study
  Country: FR (occurrence: None)
  Receive Date: 20180116
  Receipt Date: 20231124
  Transmission Date: 20240109
  Serious: Yes (Hospitalization)
  Sender: FDA-Public Use
  Company Number: 2018SE02656

PATIENT
  Age: 68 Year
  Sex: Female

DRUGS (30)
  1. ACALABRUTINIB [Suspect]
     Active Substance: ACALABRUTINIB
     Indication: Mantle cell lymphoma
     Route: 048
     Dates: start: 20171206, end: 20171220
  2. ACALABRUTINIB [Suspect]
     Active Substance: ACALABRUTINIB
     Indication: Mantle cell lymphoma
     Route: 048
     Dates: start: 20180105, end: 20180105
  3. BENDAMUSTINE [Suspect]
     Active Substance: BENDAMUSTINE
     Indication: Mantle cell lymphoma
     Dosage: 145.0MG ONCE/SINGLE ADMINISTRATION
     Route: 042
     Dates: start: 20171206, end: 20171206
  4. BENDAMUSTINE [Suspect]
     Active Substance: BENDAMUSTINE
     Indication: Mantle cell lymphoma
     Dosage: 145.0MG ONCE/SINGLE ADMINISTRATION
     Route: 042
     Dates: start: 20171207, end: 20171207
  5. BENDAMUSTINE [Suspect]
     Active Substance: BENDAMUSTINE
     Indication: Mantle cell lymphoma
     Dosage: 145.0MG ONCE/SINGLE ADMINISTRATION
     Route: 042
     Dates: start: 20180104, end: 20180104
  6. BENDAMUSTINE [Suspect]
     Active Substance: BENDAMUSTINE
     Indication: Mantle cell lymphoma
     Dosage: 145.0MG ONCE/SINGLE ADMINISTRATION
     Route: 042
     Dates: start: 20180105, end: 20180105
  7. RITUXIMAB [Suspect]
     Active Substance: RITUXIMAB
     Indication: Mantle cell lymphoma
     Dosage: 610.0MG ONCE/SINGLE ADMINISTRATION
     Route: 042
     Dates: start: 20171206, end: 20171206
  8. RITUXIMAB [Suspect]
     Active Substance: RITUXIMAB
     Indication: Mantle cell lymphoma
     Dosage: 610.0MG ONCE/SINGLE ADMINISTRATION
     Route: 042
     Dates: start: 20180103, end: 20180103
  9. FOSAVANCE [Concomitant]
     Active Substance: ALENDRONATE SODIUM\CHOLECALCIFEROL
     Indication: Carpal tunnel syndrome
     Route: 048
  10. LYSINE ACETYLSALICYLATE [Concomitant]
     Active Substance: ASPIRIN DL-LYSINE
     Indication: Migraine
     Route: 048
  11. OXYBUTINE [Concomitant]
     Indication: Carpal tunnel syndrome
     Route: 048
  12. PREDNISONE [Concomitant]
     Active Substance: PREDNISONE
     Indication: Raynaud^s phenomenon
     Route: 048
     Dates: start: 201307
  13. ALLOPURINOL [Concomitant]
     Active Substance: ALLOPURINOL
     Indication: Prophylactic chemotherapy
     Route: 048
     Dates: start: 20171206
  14. AMLODIPINE [Concomitant]
     Active Substance: AMLODIPINE BESYLATE
     Indication: Pain
     Route: 048
     Dates: start: 20171208
  15. AMOXICILLIN [Concomitant]
     Active Substance: AMOXICILLIN
     Indication: Prophylaxis
     Route: 048
     Dates: start: 20171208
  16. LEUCOVORIN CALCIUM [Concomitant]
     Active Substance: LEUCOVORIN CALCIUM
     Indication: Prophylaxis
     Route: 048
     Dates: start: 20171210
  17. BETHAMETAZONE [Concomitant]
     Indication: Toxic skin eruption
     Dosage: 1 APPLICATION, ONCE DAILY
     Route: 062
     Dates: start: 20171220
  18. HYDROXYZINE [Concomitant]
     Active Substance: HYDROXYZINE HYDROCHLORIDE
     Indication: Anxiety
     Route: 048
     Dates: start: 20171220, end: 20171228
  19. TRAMADOL [Concomitant]
     Active Substance: TRAMADOL\TRAMADOL HYDROCHLORIDE
     Indication: Toxic skin eruption
     Route: 048
     Dates: start: 20171221
  20. BENZALKONIUM CHLORIDE\BENZYL ALCOHOL\CHLORHEXIDINE [Concomitant]
     Active Substance: BENZALKONIUM CHLORIDE\BENZYL ALCOHOL\CHLORHEXIDINE
     Indication: Toxic skin eruption
     Dosage: 1 APPLICATION, ONCE DAILY
     Route: 062
     Dates: start: 20171222
  21. CLOBETASOL [Concomitant]
     Active Substance: CLOBETASOL
     Indication: Toxic skin eruption
     Dosage: 2 APPLICATION, ONCE DAILY
     Route: 062
     Dates: start: 20171222
  22. BETAMETHASONE VALERATE [Concomitant]
     Active Substance: BETAMETHASONE VALERATE
     Indication: Toxic skin eruption
     Dosage: 1 APPLICATION, AS NEEDED
     Route: 062
     Dates: start: 20171222, end: 20171228
  23. CETIRIZINE [Concomitant]
     Active Substance: CETIRIZINE HYDROCHLORIDE
     Indication: Toxic skin eruption
     Route: 048
     Dates: start: 20171222, end: 20171228
  24. CETIRIZINE [Concomitant]
     Active Substance: CETIRIZINE HYDROCHLORIDE
     Indication: Toxic skin eruption
     Route: 048
     Dates: start: 20180106
  25. DERMOVAL [Concomitant]
     Indication: Toxic skin eruption
     Dosage: 1 APPLICATION, AS NEEDED
     Route: 062
     Dates: start: 20171222, end: 20171228
  26. DEXERYL [Concomitant]
     Indication: Toxic skin eruption
     Dosage: 1 APPLICATION, AS NEEDED
     Route: 062
     Dates: start: 20171222, end: 20171228
  27. DOMPERIDONE [Concomitant]
     Active Substance: DOMPERIDONE
     Indication: Vomiting
     Route: 048
     Dates: start: 20171226, end: 20171226
  28. TINZAPARIN [Concomitant]
     Active Substance: TINZAPARIN
     Indication: Phlebitis
     Route: 042
     Dates: start: 20171226, end: 20171228
  29. SODIUM ALGINATE [Concomitant]
     Active Substance: SODIUM ALGINATE
     Indication: Abdominal pain upper
     Dosage: 1 SACHET, AS NEEDED
     Route: 048
     Dates: start: 20171226, end: 20180104
  30. METOCLOPRAMIDE [Concomitant]
     Active Substance: METOCLOPRAMIDE
     Indication: Prophylaxis
     Route: 048
     Dates: start: 20180104, end: 20180105

REACTIONS (1)
  - Face oedema [Recovered/Resolved]

NARRATIVE: CASE EVENT DATE: 20180105
